FAERS Safety Report 13683286 (Version 1)
Quarter: 2017Q2

REPORT INFORMATION
  Report Type: Report from Study
  Country: CA (occurrence: CA)
  Receive Date: 20170623
  Receipt Date: 20170623
  Transmission Date: 20170830
  Serious: Yes (Other)
  Sender: FDA-Public Use
  Company Number: CA-AMGEN-CANSL2017092968

PATIENT
  Age: 72 Year
  Sex: Female

DRUGS (3)
  1. SYNTHROID [Concomitant]
     Active Substance: LEVOTHYROXINE SODIUM
     Indication: THYROID CANCER
     Dosage: 0.112 MG, UNK
     Dates: start: 1971
  2. BABY ASPIRIN [Concomitant]
     Active Substance: ASPIRIN
     Dosage: UNK, ONCE EVERY THREE DAYS
  3. PROLIA [Suspect]
     Active Substance: DENOSUMAB
     Indication: OSTEOPENIA
     Dosage: UNK
     Route: 065
     Dates: start: 20150420

REACTIONS (9)
  - Eczema [Not Recovered/Not Resolved]
  - Jaw disorder [Unknown]
  - Dysphagia [Unknown]
  - Exposed bone in jaw [Unknown]
  - Muscle twitching [Unknown]
  - Off label use [Unknown]
  - Muscle spasms [Unknown]
  - Alopecia [Recovering/Resolving]
  - Toothache [Unknown]

NARRATIVE: CASE EVENT DATE: 201612
